FAERS Safety Report 18886977 (Version 2)
Quarter: 2021Q3

REPORT INFORMATION
  Report Type: Spontaneous
  Country: US (occurrence: US)
  Receive Date: 20210212
  Receipt Date: 20210831
  Transmission Date: 20211014
  Serious: Yes (Hospitalization)
  Sender: FDA-Public Use
  Company Number: US-SA-2021SA040839

PATIENT
  Age: 45 Year
  Sex: Female
  Weight: 112.4 kg

DRUGS (14)
  1. POLYETHYLENE GLYCOL 3350. [Concomitant]
     Active Substance: POLYETHYLENE GLYCOL 3350
  2. DIAZEPAM. [Concomitant]
     Active Substance: DIAZEPAM
  3. MAGNESIUM [Concomitant]
     Active Substance: MAGNESIUM
  4. VITAMIN A [RETINOL] [Concomitant]
     Active Substance: RETINOL
  5. HYDROMORPHONE HCL [Concomitant]
     Active Substance: HYDROMORPHONE HYDROCHLORIDE
  6. DUPIXENT [Suspect]
     Active Substance: DUPILUMAB
     Indication: DERMATITIS ATOPIC
     Dosage: 300 MG, QOW
     Route: 058
     Dates: start: 201908
  7. DOXYCYCLINE HYCLATE. [Concomitant]
     Active Substance: DOXYCYCLINE HYCLATE
  8. MONTELUKAST SODIUM. [Concomitant]
     Active Substance: MONTELUKAST SODIUM
  9. GABAPENTIN. [Concomitant]
     Active Substance: GABAPENTIN
  10. CEPHALEXINE [Concomitant]
     Active Substance: CEPHALEXIN
  11. TRAZODONE HYDROCHLORIDE. [Concomitant]
     Active Substance: TRAZODONE HYDROCHLORIDE
  12. NITROFURANTOIN. [Concomitant]
     Active Substance: NITROFURANTOIN
  13. CLOPIDOGREL [Concomitant]
     Active Substance: CLOPIDOGREL BISULFATE
  14. SENNA PLUS [SENNA ALEXANDRINA] [Concomitant]

REACTIONS (3)
  - Product preparation error [Unknown]
  - Injection site pain [Unknown]
  - Surgery [Unknown]

NARRATIVE: CASE EVENT DATE: 20210127
